FAERS Safety Report 16844585 (Version 1)
Quarter: 2019Q3

REPORT INFORMATION
  Report Type: Report from Study
  Country: GB (occurrence: GB)
  Receive Date: 20190924
  Receipt Date: 20190924
  Transmission Date: 20191005
  Serious: Yes (Other)
  Sender: FDA-Public Use
  Company Number: GB-SAMSUNG BIOEPIS-SB-2019-01030

PATIENT
  Sex: Female

DRUGS (1)
  1. BENEPALI [Suspect]
     Active Substance: ETANERCEPT
     Indication: PSORIATIC ARTHROPATHY
     Route: 058
     Dates: start: 20181101

REACTIONS (5)
  - Breast operation [Not Recovered/Not Resolved]
  - Infection [Not Recovered/Not Resolved]
  - Mastitis [Unknown]
  - Lower respiratory tract infection [Not Recovered/Not Resolved]
  - Post procedural discharge [Not Recovered/Not Resolved]
